FAERS Safety Report 7102042-4 (Version None)
Quarter: 2010Q4

REPORT INFORMATION
  Report Type: 
  Country: None (occurrence: None)
  Receive Date: 20101115
  Receipt Date: 20101108
  Transmission Date: 20110411
  Serious: Yes (Other)
  Sender: FDA-Public Use
  Company Number: CA-ROCHE-721385

PATIENT
  Sex: Male

DRUGS (4)
  1. PEGASYS [Suspect]
     Indication: HEPATITIS C
     Route: 058
     Dates: start: 20100802, end: 20100809
  2. PEGASYS [Suspect]
     Route: 058
     Dates: start: 20100801
  3. COPEGUS [Suspect]
     Indication: HEPATITIS C
     Dosage: FREQUENCY: DAILY
     Route: 048
     Dates: start: 20100802, end: 20100816
  4. COPEGUS [Suspect]
     Route: 048
     Dates: start: 20100801

REACTIONS (2)
  - BLOOD IRON INCREASED [None]
  - PYREXIA [None]
